FAERS Safety Report 5225541-9 (Version None)
Quarter: 2007Q1

REPORT INFORMATION
  Report Type: 
  Country: None (occurrence: None)
  Receive Date: 20061201
  Receipt Date: 20061010
  Transmission Date: 20070707
  Serious: Yes (Other)
  Sender: FDA-Public Use
  Company Number: US200610000447

PATIENT
  Sex: Male

DRUGS (1)
  1. CYMBALTA [Suspect]

REACTIONS (2)
  - CONVULSION [None]
  - HYPONATRAEMIA [None]
